FAERS Safety Report 18792327 (Version 1)
Quarter: 2021Q1

REPORT INFORMATION
  Report Type: Other
  Country: CN (occurrence: CN)
  Receive Date: 20210127
  Receipt Date: 20210127
  Transmission Date: 20210419
  Serious: Yes (Other)
  Sender: FDA-Public Use
  Company Number: CN-ROCHE-2754107

PATIENT

DRUGS (4)
  1. LAPATINIB [Suspect]
     Active Substance: LAPATINIB
     Indication: HER2 POSITIVE BREAST CANCER
     Route: 065
  2. TRASTUZUMAB. [Suspect]
     Active Substance: TRASTUZUMAB
     Indication: HER2 POSITIVE BREAST CANCER
     Route: 065
  3. PERTUZUMAB. [Suspect]
     Active Substance: PERTUZUMAB
     Indication: HER2 POSITIVE BREAST CANCER
     Route: 065
  4. PYROTINIB [Suspect]
     Active Substance: PYROTINIB
     Indication: HER2 POSITIVE BREAST CANCER
     Route: 065

REACTIONS (4)
  - Dermatitis [Recovered/Resolved]
  - Neutropenia [Unknown]
  - Thrombocytopenia [Recovered/Resolved]
  - Hyperbilirubinaemia [Unknown]
